FAERS Safety Report 21877672 (Version 2)
Quarter: 2023Q2

REPORT INFORMATION
  Report Type: Spontaneous
  Country: US (occurrence: US)
  Receive Date: 20230118
  Receipt Date: 20230403
  Transmission Date: 20230721
  Serious: Yes (Hospitalization)
  Sender: FDA-Public Use
  Company Number: US-UROGEN PHARMA LTD.-2022-UGN-000151

PATIENT

DRUGS (6)
  1. JELMYTO [Suspect]
     Active Substance: MITOMYCIN
     Indication: Transitional cell cancer of the renal pelvis and ureter
     Dosage: 4 MILLILITER, ONE TIME PER WEEK (INSTILLATION)
     Dates: start: 20221222, end: 20221222
  2. JELMYTO [Suspect]
     Active Substance: MITOMYCIN
     Dosage: 4 MILLILITER, ONE TIME PER WEEK (INSTILLATION)
     Dates: start: 20221229, end: 20221229
  3. JELMYTO [Suspect]
     Active Substance: MITOMYCIN
     Dosage: 4 MILLILITER, ONE TIME PER WEEK (INSTILLATION)
     Dates: start: 20230105, end: 20230105
  4. JELMYTO [Suspect]
     Active Substance: MITOMYCIN
     Dosage: 4 MILLILITER, ONE TIME PER WEEK (INSTILLATION)
     Dates: start: 20230112, end: 20230112
  5. JELMYTO [Suspect]
     Active Substance: MITOMYCIN
     Dosage: 4 MILLILITER, ONE TIME PER WEEK (INSTILLATION)
     Dates: start: 20230119, end: 20230119
  6. JELMYTO [Suspect]
     Active Substance: MITOMYCIN
     Dosage: 4 MILLILITER, ONE TIME PER WEEK (INSTILLATION)
     Dates: start: 20230126, end: 20230126

REACTIONS (2)
  - Flank pain [Recovered/Resolved]
  - Vomiting [Recovered/Resolved]

NARRATIVE: CASE EVENT DATE: 20221222
